FAERS Safety Report 10504890 (Version 1)
Quarter: 2014Q3

REPORT INFORMATION
  Report Type: Spontaneous
  Country: US (occurrence: None)
  Receive Date: 20140915
  Receipt Date: 20140915
  Transmission Date: 20150326
  Serious: Yes (Other)
  Sender: FDA-Public Use
  Company Number: JPI-P-032105

PATIENT
  Age: 40 Year
  Sex: Female
  Weight: 101.4 kg

DRUGS (3)
  1. XYREM [Suspect]
     Active Substance: SODIUM OXYBATE
     Indication: NARCOLEPSY
     Route: 048
     Dates: start: 20060119, end: 2006
  2. OTHER UNSPECIFIED MEDIATIONS (ALL OTHER THERAPEUTIC PRODUCTS) [Concomitant]
  3. SOMA [Concomitant]
     Active Substance: CARISOPRODOL

REACTIONS (11)
  - Drug administration error [None]
  - Carpal tunnel syndrome [None]
  - Condition aggravated [None]
  - Contusion [None]
  - Poor quality sleep [None]
  - Insomnia [None]
  - Depression [None]
  - Irritability [None]
  - Suicidal ideation [None]
  - Fall [None]
  - Somnolence [None]

NARRATIVE: CASE EVENT DATE: 20130512
